FAERS Safety Report 7729528-3 (Version None)
Quarter: 2011Q3

REPORT INFORMATION
  Report Type: 
  Country: None (occurrence: None)
  Receive Date: 20110901
  Receipt Date: 20110901
  Transmission Date: 20111222
  Serious: No
  Sender: FDA-Public Use
  Company Number: None

PATIENT
  Sex: Female
  Weight: 94.9 kg

DRUGS (4)
  1. DOXORUBICIN HYDROCHLORIDE [Suspect]
     Dosage: 128 MG
     Dates: end: 20110801
  2. CYCLOPHOSPHAMIDE [Suspect]
     Dosage: 1280 MG
     Dates: end: 20110801
  3. NEULASTA [Suspect]
     Dosage: 6 MG
     Dates: end: 20110803
  4. DEXAMETHASONE [Suspect]
     Dosage: 12 MG
     Dates: end: 20110801

REACTIONS (1)
  - WEIGHT DECREASED [None]
